FAERS Safety Report 6544597-4 (Version None)
Quarter: 2010Q1

REPORT INFORMATION
  Report Type: 
  Country: None (occurrence: None)
  Receive Date: 20100121
  Receipt Date: 20100111
  Transmission Date: 20100710
  Serious: Yes (Other)
  Sender: FDA-Public Use
  Company Number: PHHY2010AT01952

PATIENT
  Sex: Female
  Weight: 75 kg

DRUGS (2)
  1. ZOMETA [Suspect]
     Dosage: 4 MG TWICE A YEAR
     Dates: start: 20070116
  2. FEMARA [Suspect]
     Dosage: 1 DAILY

REACTIONS (6)
  - HEADACHE [None]
  - MOVEMENT DISORDER [None]
  - NAUSEA [None]
  - PAIN [None]
  - PYREXIA [None]
  - WEIGHT DECREASED [None]
